FAERS Safety Report 5127572-6 (Version None)
Quarter: 2006Q4

REPORT INFORMATION
  Report Type: 
  Country: None (occurrence: None)
  Receive Date: 20061011
  Receipt Date: 20060925
  Transmission Date: 20070319
  Serious: Yes (Life-Threatening)
  Sender: FDA-Public Use
  Company Number: 2006EU002674

PATIENT
  Age: 52 Year
  Sex: Female

DRUGS (2)
  1. PROTOPIC [Suspect]
     Dosage: 0.1%, UID/QD, TOPICAL; 0.03%, UID/QD; TOPICAL
     Route: 061
     Dates: start: 20040901, end: 20040901
  2. PROTOPIC [Suspect]
     Dosage: 0.1%, UID/QD, TOPICAL; 0.03%, UID/QD; TOPICAL
     Route: 061
     Dates: start: 20040901, end: 20040901

REACTIONS (1)
  - T-CELL LYMPHOMA [None]
